FAERS Safety Report 5486707-6 (Version None)
Quarter: 2007Q3

REPORT INFORMATION
  Report Type: 
  Country: None (occurrence: None)
  Receive Date: 20070924
  Receipt Date: 20070604
  Transmission Date: 20080115
  Serious: Yes (Other)
  Sender: FDA-Public Use
  Company Number: 2007045985

PATIENT
  Age: 36 Year
  Sex: Female

DRUGS (2)
  1. PHENYTOIN [Suspect]
  2. KEPPRA [Suspect]
     Dosage: 1000 MG (500 MG, 2 IN 1 D), ORAL
     Route: 048

REACTIONS (2)
  - PYREXIA [None]
  - STEVENS-JOHNSON SYNDROME [None]
